FAERS Safety Report 6686930-9 (Version None)
Quarter: 2010Q2

REPORT INFORMATION
  Report Type: 
  Country: None (occurrence: None)
  Receive Date: 20100419
  Receipt Date: 20100408
  Transmission Date: 20101027
  Serious: Yes (Hospitalization)
  Sender: FDA-Public Use
  Company Number: PHHY2010NO21549

PATIENT
  Sex: Female

DRUGS (6)
  1. EXELON [Suspect]
     Indication: DEMENTIA ALZHEIMER'S TYPE
     Dosage: 4.6 MG DAILY
     Route: 062
     Dates: start: 20100201, end: 20100301
  2. METFORMIN HCL [Concomitant]
     Indication: DIABETES MELLITUS
     Route: 048
  3. TOLVON [Concomitant]
     Indication: INSOMNIA
  4. SIMVASTATIN [Concomitant]
     Indication: HYPERLIPIDAEMIA
     Route: 048
  5. SOBRIL [Concomitant]
     Indication: ANXIETY
  6. ZOMIG [Concomitant]
     Indication: MIGRAINE

REACTIONS (5)
  - ANXIETY [None]
  - CHILLS [None]
  - INSOMNIA [None]
  - RESTLESSNESS [None]
  - TREMOR [None]
